FAERS Safety Report 22087033 (Version 1)
Quarter: 2023Q1

REPORT INFORMATION
  Report Type: Report from Study
  Country: US (occurrence: US)
  Receive Date: 20230313
  Receipt Date: 20230313
  Transmission Date: 20230418
  Serious: Yes (Hospitalization)
  Sender: FDA-Public Use
  Company Number: US-JNJFOC-20230321395

PATIENT
  Age: 3 Decade
  Sex: Female
  Weight: 54.480 kg

DRUGS (2)
  1. INFLIXIMAB [Suspect]
     Active Substance: INFLIXIMAB
     Indication: Inflammatory bowel disease
     Route: 041
     Dates: start: 20111111, end: 20120517
  2. STELARA [Concomitant]
     Active Substance: USTEKINUMAB
     Dosage: LAST ADMINISTRATION PRIOR TO THE EVENT ON 24-DEC-2022
     Dates: start: 2019

REACTIONS (1)
  - Colonic abscess [Not Recovered/Not Resolved]

NARRATIVE: CASE EVENT DATE: 20221201
